FAERS Safety Report 15655912 (Version 1)
Quarter: 2018Q4

REPORT INFORMATION
  Report Type: Spontaneous
  Country: US (occurrence: US)
  Receive Date: 20181126
  Receipt Date: 20181126
  Transmission Date: 20190205
  Serious: Yes (Other)
  Sender: FDA-Public Use
  Company Number: US-COOPERSURGICAL, INC.-US-2018CPS033731

PATIENT

DRUGS (1)
  1. PARAGARD T 380A [Suspect]
     Active Substance: COPPER
     Indication: CONTRACEPTION
     Dosage: UNK
     Route: 015
     Dates: start: 20100525, end: 20181112

REACTIONS (4)
  - Device breakage [Recovered/Resolved]
  - Device use issue [Recovered/Resolved]
  - Complication of device removal [Unknown]
  - Foreign body in reproductive tract [Unknown]

NARRATIVE: CASE EVENT DATE: 20181108
